FAERS Safety Report 7550071-9 (Version None)
Quarter: 2011Q2

REPORT INFORMATION
  Report Type: 
  Country: None (occurrence: None)
  Receive Date: 20110615
  Receipt Date: 20110222
  Transmission Date: 20111010
  Serious: No
  Sender: FDA-Public Use
  Company Number: US-TYCO HEALTHCARE/MALLINCKRODT-T201100277

PATIENT
  Sex: Female

DRUGS (3)
  1. HEPARIN [Concomitant]
     Dosage: .05 ML, UNK
     Dates: start: 20110202, end: 20110202
  2. TECHNETIUM TC 99M GENERATOR [Concomitant]
     Dosage: UNK
     Dates: start: 20110202, end: 20110202
  3. ULTRATAG [Suspect]
     Indication: RED BLOOD CELL SCAN
     Dosage: UNK
     Route: 042
     Dates: start: 20110202, end: 20110202

REACTIONS (2)
  - DRUG INEFFECTIVE [None]
  - DRUG LEVEL CHANGED [None]
